FAERS Safety Report 21526664 (Version 1)
Quarter: 2022Q4

REPORT INFORMATION
  Report Type: Report from Study
  Country: US (occurrence: None)
  Receive Date: 20221031
  Receipt Date: 20221031
  Transmission Date: 20230113
  Serious: Yes (Death)
  Sender: FDA-Public Use
  Company Number: US-ROCHE-3208252

PATIENT

DRUGS (2)
  1. VENETOCLAX [Suspect]
     Active Substance: VENETOCLAX
     Indication: B-cell lymphoma refractory
     Dosage: PATIENT ADMINISTERED VENETOCLAX ORALLY, DAYS 2-14, AT VARYING DOSES OF 200-800 MG, EVERY 21 DAYS FOR
     Route: 048
     Dates: start: 20210612
  2. OBINUTUZUMAB [Suspect]
     Active Substance: OBINUTUZUMAB
     Indication: B-cell lymphoma refractory
     Dosage: PATIENT ADMINISTERED OBINUTUZUMAB INTRAVENOUSLY, DAYS 1 AND 2, AT A DOSE OF 1000 MG; EVERY 21 DAYS F
     Route: 042
     Dates: start: 20210611

REACTIONS (1)
  - Disease progression [Fatal]

NARRATIVE: CASE EVENT DATE: 20220623
